FAERS Safety Report 23319330 (Version 1)
Quarter: 2023Q4

REPORT INFORMATION
  Report Type: Spontaneous
  Country: BR (occurrence: BR)
  Receive Date: 20231220
  Receipt Date: 20231220
  Transmission Date: 20240109
  Serious: Yes (Other)
  Sender: FDA-Public Use
  Company Number: BR-BAXTER-2023BAX038552

PATIENT
  Age: 39 Year
  Sex: Female
  Weight: 73 kg

DRUGS (1)
  1. IRON [Suspect]
     Active Substance: IRON
     Indication: Anaemia
     Dosage: AT AN UNSPECIFIED DOSE AND FREQUENCY (ROUTE: ENDOVENOUS)
     Route: 042
     Dates: start: 20231009

REACTIONS (2)
  - Cough [Recovered/Resolved]
  - Throat tightness [Recovered/Resolved]

NARRATIVE: CASE EVENT DATE: 20231009
